FAERS Safety Report 13238420 (Version 1)
Quarter: 2017Q1

REPORT INFORMATION
  Report Type: Spontaneous
  Country: US (occurrence: US)
  Receive Date: 20170215
  Receipt Date: 20170215
  Transmission Date: 20170428
  Serious: Yes (Disabling)
  Sender: FDA-Public Use
  Company Number: None

PATIENT
  Age: 55 Year
  Sex: Female
  Weight: 87.75 kg

DRUGS (2)
  1. FLUTICASONE. [Suspect]
     Active Substance: FLUTICASONE
     Indication: NASAL CONGESTION
     Dosage: QUANTITY:1 SPRAY(S);?
     Route: 055
     Dates: start: 20170202, end: 20170212
  2. FLUTICASONE. [Suspect]
     Active Substance: FLUTICASONE
     Indication: NASOPHARYNGITIS
     Dosage: QUANTITY:1 SPRAY(S);?
     Route: 055
     Dates: start: 20170202, end: 20170212

REACTIONS (2)
  - Anosmia [None]
  - Ageusia [None]

NARRATIVE: CASE EVENT DATE: 20170212
